FAERS Safety Report 8666202 (Version 3)
Quarter: 2012Q4

REPORT INFORMATION
  Report Type: 
  Country: JP (occurrence: JP)
  Receive Date: 20120716
  Receipt Date: 20121005
  Transmission Date: 20130627
  Serious: Yes (Hospitalization)
  Sender: FDA-Public Use
  Company Number: JP-ROCHE-1069495

PATIENT
  Age: 56 Year
  Sex: Female
  Weight: 78 kg

DRUGS (3)
  1. ACTEMRA [Suspect]
     Indication: RHEUMATOID ARTHRITIS
     Dosage: Dosage is uncertain.
     Route: 041
     Dates: start: 20110222
  2. BREDININ [Concomitant]
     Indication: RHEUMATOID ARTHRITIS
     Route: 048
     Dates: start: 20071016, end: 20110321
  3. URSO [Concomitant]
     Indication: NON-ALCOHOLIC STEATOHEPATITIS
     Route: 048
     Dates: start: 20080115

REACTIONS (2)
  - Impaired healing [Recovered/Resolved]
  - Joint destruction [Unknown]
